FAERS Safety Report 10427058 (Version 2)
Quarter: 2014Q3

REPORT INFORMATION
  Report Type: Spontaneous
  Country: JP (occurrence: JP)
  Receive Date: 20140903
  Receipt Date: 20140909
  Transmission Date: 20150326
  Serious: Yes (Hospitalization)
  Sender: FDA-Public Use
  Company Number: PHJP2014JP001115

PATIENT
  Age: 52 Year
  Sex: Male

DRUGS (3)
  1. SILDENAFIL [Interacting]
     Active Substance: SILDENAFIL
     Route: 048
  2. RITALIN [Suspect]
     Active Substance: METHYLPHENIDATE HYDROCHLORIDE
     Indication: NARCOLEPSY
     Route: 048
  3. CALCIUM CHANNEL BLOCKERS [Interacting]
     Active Substance: UNSPECIFIED INGREDIENT
     Indication: HYPERTENSION
     Route: 065

REACTIONS (5)
  - Disturbance in attention [Recovering/Resolving]
  - Abnormal behaviour [Unknown]
  - Drug interaction [Unknown]
  - Disorientation [Recovering/Resolving]
  - Nausea [Unknown]
